FAERS Safety Report 21919833 (Version 7)
Quarter: 2023Q1

REPORT INFORMATION
  Report Type: Spontaneous
  Country: US (occurrence: US)
  Receive Date: 20230127
  Receipt Date: 20230313
  Transmission Date: 20230418
  Serious: Yes (Hospitalization, Other)
  Sender: FDA-Public Use
  Company Number: US-UNITED THERAPEUTICS-UNT-2023-002008

PATIENT
  Age: 55 Year
  Sex: Female
  Weight: 86.168 kg

DRUGS (14)
  1. TYVASO [Suspect]
     Active Substance: TREPROSTINIL
     Indication: Pulmonary arterial hypertension
     Dosage: 54 ?G, QID
  2. TYVASO [Suspect]
     Active Substance: TREPROSTINIL
     Dosage: UNK
  3. TYVASO [Suspect]
     Active Substance: TREPROSTINIL
     Dosage: UNK
  4. TYVASO [Suspect]
     Active Substance: TREPROSTINIL
     Dosage: UNK
     Dates: start: 20220208
  5. SILDENAFIL CITRATE [Suspect]
     Active Substance: SILDENAFIL CITRATE
     Indication: Pulmonary arterial hypertension
     Dosage: UNK
     Route: 065
  6. HYDRODIURIL [Suspect]
     Active Substance: HYDROCHLOROTHIAZIDE
     Indication: Product used for unknown indication
     Dosage: 25 MG, QD
     Route: 048
     Dates: end: 20230215
  7. FLONASE [Suspect]
     Active Substance: FLUTICASONE PROPIONATE
     Indication: Rhinitis
     Dosage: UNK, PRN (50 ?G/ACT, 2 SPRAYS DAILY, NASAL SPRAY) PRN
     Route: 045
  8. FLONASE [Suspect]
     Active Substance: FLUTICASONE PROPIONATE
     Indication: Hypersensitivity
  9. REVATIO [Concomitant]
     Active Substance: SILDENAFIL CITRATE
     Indication: Pulmonary arterial hypertension
     Dosage: 20 MG, TID
     Route: 048
  10. LETAIRIS [Concomitant]
     Active Substance: AMBRISENTAN
     Indication: Pulmonary arterial hypertension
     Dosage: 10 MG, QD
     Route: 048
  11. VITAMIN D3 [Concomitant]
     Active Substance: CHOLECALCIFEROL
     Indication: Product used for unknown indication
     Dosage: 2000 IU, QD
     Route: 048
  12. TESSALON [Concomitant]
     Active Substance: BENZONATATE
     Indication: Product used for unknown indication
     Dosage: 100 MG, UNK
     Route: 065
  13. DIPHENHYDRAMINE [Concomitant]
     Active Substance: DIPHENHYDRAMINE
     Indication: Product used for unknown indication
     Dosage: 25 MG, UNK (TABLETS/ CAPSULES)
     Route: 048
  14. VENTOLIN HFA [Concomitant]
     Active Substance: ALBUTEROL SULFATE
     Indication: Asthma
     Dosage: UNK, PRN (90 BASE, ?G/ACT, INHALE 2 PUFFS 4 TIMES DAILY), PRN

REACTIONS (25)
  - Blood potassium decreased [Recovered/Resolved]
  - Blood pressure increased [Unknown]
  - Stress [Recovered/Resolved]
  - Angina pectoris [Unknown]
  - Carotid artery stenosis [Unknown]
  - Pruritus [Unknown]
  - Chest pain [Not Recovered/Not Resolved]
  - Type V hyperlipidaemia [Unknown]
  - Aortic valve stenosis [Unknown]
  - Essential hypertension [Unknown]
  - Chest discomfort [Unknown]
  - Hyperhidrosis [Unknown]
  - Dyspepsia [Unknown]
  - Dyspnoea exertional [Unknown]
  - Emotional disorder [Unknown]
  - Headache [Unknown]
  - Blood pressure decreased [Unknown]
  - Drug intolerance [Unknown]
  - Anxiety [Unknown]
  - Ear infection [Unknown]
  - Pain [Unknown]
  - Gastrooesophageal reflux disease [Unknown]
  - Pain in jaw [Unknown]
  - Nervousness [Unknown]
  - Swelling face [Unknown]

NARRATIVE: CASE EVENT DATE: 20221208
